FAERS Safety Report 15264744 (Version 1)
Quarter: 2018Q3

REPORT INFORMATION
  Report Type: Spontaneous
  Country: US (occurrence: US)
  Receive Date: 20180810
  Receipt Date: 20180810
  Transmission Date: 20181010
  Serious: Yes (Other)
  Sender: FDA-Public Use
  Company Number: US-PFIZER INC-2018318114

PATIENT
  Age: 74 Year
  Sex: Female

DRUGS (3)
  1. IBRANCE [Suspect]
     Active Substance: PALBOCICLIB
     Dosage: 125 MG, CYCLIC, ^FOR 21 DAYS AND THEN OFF FOR 7 DAYS^
     Route: 048
     Dates: start: 20180702, end: 20180806
  2. SAVAYSA [Concomitant]
     Active Substance: EDOXABAN TOSYLATE
     Dosage: 30 MG, UNK
  3. CALCIUM VITAMIN D3 [Concomitant]
     Dosage: UNK

REACTIONS (1)
  - Neutropenia [Not Recovered/Not Resolved]

NARRATIVE: CASE EVENT DATE: 20180806
